FAERS Safety Report 7125114-7 (Version None)
Quarter: 2010Q4

REPORT INFORMATION
  Report Type: 
  Country: None (occurrence: None)
  Receive Date: 20101129
  Receipt Date: 20101021
  Transmission Date: 20110411
  Serious: Yes (Death, Hospitalization, Other)
  Sender: FDA-Public Use
  Company Number: US-AMGEN-KDC424984

PATIENT
  Age: 78 Year
  Sex: Female
  Weight: 56.1 kg

DRUGS (3)
  1. PANITUMUMAB [Suspect]
     Indication: PANCREATIC CARCINOMA
     Dosage: 4.0 MG/M2, PER CHEMO REGIM
     Route: 042
     Dates: start: 20100525, end: 20100809
  2. GEMCITABINE [Suspect]
     Indication: PANCREATIC CARCINOMA
     Dosage: 1000 MG/M2, PER CHEMO REGIM
     Route: 042
     Dates: start: 20100525, end: 20100809
  3. ERLOTINIB HYDROCHLORIDE [Suspect]
     Indication: PANCREATIC CARCINOMA
     Dosage: 100 MG, PER CHEMO REGIM
     Route: 048
     Dates: start: 20100525, end: 20100809

REACTIONS (10)
  - BLOOD ALKALINE PHOSPHATASE [None]
  - FATIGUE [None]
  - HAEMOGLOBIN DECREASED [None]
  - HEPATIC FAILURE [None]
  - HYPOALBUMINAEMIA [None]
  - HYPOCALCAEMIA [None]
  - HYPONATRAEMIA [None]
  - MALIGNANT NEOPLASM PROGRESSION [None]
  - PLATELET COUNT [None]
  - PYREXIA [None]
